FAERS Safety Report 10032745 (Version 2)
Quarter: 2014Q2

REPORT INFORMATION
  Report Type: Spontaneous
  Country: JP (occurrence: JP)
  Receive Date: 20140324
  Receipt Date: 20140414
  Transmission Date: 20141212
  Serious: Yes (Hospitalization, Other)
  Sender: FDA-Public Use
  Company Number: PHJP2014JP000643

PATIENT
  Sex: Male

DRUGS (14)
  1. TEGRETOL TAB 200MG [Suspect]
     Indication: PROPHYLAXIS
     Dosage: 200 MG, DAILY
     Route: 048
  2. TEGRETOL TAB 200MG [Suspect]
     Indication: CEREBRAL INFARCTION
  3. TEGRETOL TAB 200MG [Suspect]
     Indication: CONVULSION
  4. WARFARIN [Concomitant]
     Dosage: UNK UKN, UNK
     Route: 048
  5. PRORENAL [Concomitant]
     Dosage: UNK UKN, UNK
     Route: 048
  6. MAINTATE [Concomitant]
     Dosage: UNK UKN, UNK
     Route: 048
  7. ZYLORIC [Concomitant]
     Dosage: UNK UKN, UNK
     Route: 048
  8. CONIEL [Concomitant]
     Dosage: 8 MG, UNK
     Route: 048
  9. MYSLEE [Concomitant]
     Indication: INSOMNIA
     Dosage: UNK UKN, UNK
     Route: 048
  10. DEPAS [Concomitant]
     Indication: INSOMNIA
     Dosage: UNK UKN, UNK
     Route: 048
  11. PLAVIX [Concomitant]
     Dosage: UNK UKN, UNK
     Route: 048
  12. TAKEPRON [Concomitant]
     Dosage: UNK UKN, UNK
     Route: 065
  13. CARTEOLOL HYDROCHLORIDE [Concomitant]
     Dosage: UNK UKN, UNK
     Route: 065
  14. ANTIHYPERTENSIVES [Concomitant]
     Dosage: UNK UKN, UNK
     Route: 065

REACTIONS (7)
  - Asthma [Unknown]
  - Dyspnoea [Unknown]
  - Status epilepticus [Recovered/Resolved]
  - Aphasia [Not Recovered/Not Resolved]
  - Quadriplegia [Recovered/Resolved]
  - Blood pressure increased [Unknown]
  - Depressed level of consciousness [Unknown]
